FAERS Safety Report 5103129-8 (Version None)
Quarter: 2006Q3

REPORT INFORMATION
  Report Type: 
  Country: None (occurrence: None)
  Receive Date: 20060908
  Receipt Date: 20060828
  Transmission Date: 20061208
  Serious: Yes (Death)
  Sender: FDA-Public Use
  Company Number: 2006104004

PATIENT
  Age: 76 Year
  Sex: Male

DRUGS (4)
  1. VFEND [Suspect]
     Indication: DRUG USE FOR UNKNOWN INDICATION
     Dosage: 600 MG, ORAL
     Route: 048
     Dates: start: 20060824, end: 20060825
  2. SEREVENT [Concomitant]
  3. CLARITHROMYCIN [Concomitant]
  4. BAKTAR (SULFMETHOXAZOLE, TRIMETHOPRIM) [Concomitant]

REACTIONS (1)
  - CARDIAC FAILURE [None]
